FAERS Safety Report 13407512 (Version 1)
Quarter: 2017Q2

REPORT INFORMATION
  Report Type: Spontaneous
  Country: GB (occurrence: GB)
  Receive Date: 20170405
  Receipt Date: 20170405
  Transmission Date: 20170830
  Serious: Yes (Other)
  Sender: FDA-Public Use
  Company Number: PHHY2017GB045195

PATIENT
  Age: 65 Year
  Sex: Female

DRUGS (2)
  1. ANASTROZOLE ACCORD [Suspect]
     Active Substance: ANASTROZOLE
     Indication: PRODUCT USED FOR UNKNOWN INDICATION
     Route: 065
  2. ANASTROZOLE. [Suspect]
     Active Substance: ANASTROZOLE
     Indication: PRODUCT USED FOR UNKNOWN INDICATION
     Dosage: 1 MG, UNK
     Route: 065
     Dates: start: 2013, end: 201701

REACTIONS (19)
  - Gastrooesophageal reflux disease [Unknown]
  - Lethargy [Unknown]
  - Depression [Unknown]
  - Dry skin [Unknown]
  - Dupuytren^s contracture [Unknown]
  - Sleep disorder [Unknown]
  - Palpitations [Unknown]
  - Adverse event [Unknown]
  - Headache [Unknown]
  - Hiatus hernia [Unknown]
  - Mood swings [Unknown]
  - Paraesthesia [Unknown]
  - Muscular weakness [Unknown]
  - Oesophagitis [Unknown]
  - Myalgia [Unknown]
  - Memory impairment [Unknown]
  - Nausea [Unknown]
  - Bone pain [Unknown]
  - Cataract [Unknown]
